FAERS Safety Report 24461380 (Version 1)
Quarter: 2024Q4

REPORT INFORMATION
  Report Type: Report from Study
  Country: JP (occurrence: JP)
  Receive Date: 20241018
  Receipt Date: 20241018
  Transmission Date: 20250114
  Serious: No
  Sender: ROCHE
  Company Number: JP-ROCHE-3570015

PATIENT
  Age: 63 Year
  Sex: Female

DRUGS (12)
  1. RITUXIMAB [Suspect]
     Active Substance: RITUXIMAB
     Indication: Follicular lymphoma
     Route: 065
  2. CYCLOPHOSPHAMIDE [Concomitant]
     Active Substance: CYCLOPHOSPHAMIDE
     Route: 050
  3. DOXORUBICIN [Concomitant]
     Active Substance: DOXORUBICIN
     Route: 050
  4. VINCRISTINE [Concomitant]
     Active Substance: VINCRISTINE
     Route: 050
  5. DEXAMETHASONE [Concomitant]
     Active Substance: DEXAMETHASONE
     Route: 050
  6. METHYLPREDNISOLONE [Concomitant]
     Active Substance: METHYLPREDNISOLONE
     Route: 050
  7. BENDAMUSTINE [Concomitant]
     Active Substance: BENDAMUSTINE
     Route: 050
  8. CARBOPLATIN [Concomitant]
     Active Substance: CARBOPLATIN
     Route: 050
  9. ETOPOSIDE [Concomitant]
     Active Substance: ETOPOSIDE
     Route: 050
  10. CISPLATIN [Concomitant]
     Active Substance: CISPLATIN
     Route: 050
  11. CYTARABINE [Concomitant]
     Active Substance: CYTARABINE
     Route: 050
  12. PREDNISOLONE [Concomitant]
     Active Substance: PREDNISOLONE

REACTIONS (1)
  - Hepatitis B reactivation [Unknown]
